FAERS Safety Report 5445277-9 (Version None)
Quarter: 2007Q3

REPORT INFORMATION
  Report Type: 
  Country: None (occurrence: None)
  Receive Date: 20070906
  Receipt Date: 20070829
  Transmission Date: 20080115
  Serious: Yes (Other)
  Sender: FDA-Public Use
  Company Number: GB-PFIZER INC-2007072192

PATIENT
  Age: 57 Year
  Sex: Female

DRUGS (2)
  1. SERTRALINE [Suspect]
     Indication: DEPRESSION
     Dosage: TEXT:100 MG
     Route: 048
  2. LANSOPRAZOLE [Concomitant]
     Route: 048
     Dates: start: 20070302, end: 20070520

REACTIONS (1)
  - ATRIOVENTRICULAR BLOCK FIRST DEGREE [None]
